FAERS Safety Report 6139560-1 (Version None)
Quarter: 2009Q2

REPORT INFORMATION
  Report Type: 
  Country: None (occurrence: None)
  Receive Date: 20090401
  Receipt Date: 20090319
  Transmission Date: 20091009
  Serious: Yes (Hospitalization, Other)
  Sender: FDA-Public Use
  Company Number: JP-NOVOPROD-268906

PATIENT
  Age: 58 Year
  Sex: Female

DRUGS (1)
  1. PENFILL 30R CHU [Suspect]
     Indication: TYPE 2 DIABETES MELLITUS
     Dosage: UNK, UNK
     Route: 058
     Dates: start: 20010101, end: 20060101

REACTIONS (4)
  - ANTI-INSULIN ANTIBODY [None]
  - AUTOANTIBODY POSITIVE [None]
  - BLADDER PERFORATION [None]
  - BLOOD GLUCOSE FLUCTUATION [None]
